FAERS Safety Report 19190755 (Version 1)
Quarter: 2021Q2

REPORT INFORMATION
  Report Type: Spontaneous
  Country: US (occurrence: US)
  Receive Date: 20210428
  Receipt Date: 20210428
  Transmission Date: 20210717
  Serious: No
  Sender: FDA-Public Use
  Company Number: US-ARBOR PHARMACEUTICALS, LLC-US-2020ARB000367

PATIENT
  Sex: Male

DRUGS (2)
  1. ERYTHROMYCIN ETHYLSUCCINATE. [Suspect]
     Active Substance: ERYTHROMYCIN ETHYLSUCCINATE
     Indication: IMPAIRED GASTRIC EMPTYING
     Dosage: GENERIC ERYTHROMYCIN ETHYLSUCCINATE, TID
     Route: 065
  2. ERYTHROMYCIN ETHYLSUCCINATE. [Suspect]
     Active Substance: ERYTHROMYCIN ETHYLSUCCINATE
     Dosage: BRANDED ERY?PED, TID

REACTIONS (5)
  - Weight decreased [Unknown]
  - Vomiting [Unknown]
  - Product availability issue [Unknown]
  - Malaise [Unknown]
  - Off label use [Unknown]
